FAERS Safety Report 13072209 (Version 2)
Quarter: 2017Q1

REPORT INFORMATION
  Report Type: Spontaneous
  Country: US (occurrence: US)
  Receive Date: 20161229
  Receipt Date: 20170330
  Transmission Date: 20170428
  Serious: No
  Sender: FDA-Public Use
  Company Number: US-MYLANLABS-2016M1044819

PATIENT
  Sex: Female
  Weight: 71.66 kg

DRUGS (2)
  1. CITRACAL                           /00751520/ [Suspect]
     Active Substance: CALCIUM CITRATE
     Indication: PRODUCT USED FOR UNKNOWN INDICATION
     Dosage: UNK
  2. CITALOPRAM [Suspect]
     Active Substance: CITALOPRAM HYDROBROMIDE
     Indication: DEPRESSION
     Dosage: 40 MG, QD
     Route: 048
     Dates: start: 2012

REACTIONS (2)
  - Eye swelling [Recovering/Resolving]
  - Hypersensitivity [Not Recovered/Not Resolved]
